FAERS Safety Report 5287104-9 (Version None)
Quarter: 2007Q1

REPORT INFORMATION
  Report Type: 
  Country: None (occurrence: None)
  Receive Date: 20070330
  Receipt Date: 20070322
  Transmission Date: 20070707
  Serious: Yes (Hospitalization)
  Sender: FDA-Public Use
  Company Number: 154376USA

PATIENT
  Age: 64 Year
  Sex: Female

DRUGS (2)
  1. BACLOFEN [Suspect]
     Dates: start: 20060601
  2. INTERFERON BETA-1A [Suspect]
     Dosage: 22 MCG ONE IN THREE DAYS
     Dates: start: 20060418

REACTIONS (1)
  - RESPIRATORY DISTRESS [None]
